FAERS Safety Report 5528229-X (Version None)
Quarter: 2007Q4

REPORT INFORMATION
  Report Type: 
  Country: None (occurrence: None)
  Receive Date: 20071128
  Receipt Date: 20071116
  Transmission Date: 20080405
  Serious: Yes (Disabling)
  Sender: FDA-Public Use
  Company Number: GB-PFIZER INC-2007074361

PATIENT
  Age: 67 Year
  Sex: Male
  Weight: 58 kg

DRUGS (6)
  1. CHAMPIX [Suspect]
     Indication: SMOKING CESSATION THERAPY
     Route: 048
     Dates: start: 20070430, end: 20070514
  2. DICLOFENAC SODIUM [Concomitant]
     Indication: OSTEOARTHRITIS
     Route: 048
  3. SALAZOPYRIN [Concomitant]
     Indication: RHEUMATOID ARTHRITIS
     Route: 048
  4. ALBUTEROL [Concomitant]
     Indication: ASTHMA
     Route: 048
  5. SERETIDE [Concomitant]
     Indication: ASTHMA
     Dosage: TEXT:2 DF
     Route: 048
  6. TIOTROPIUM BROMIDE [Concomitant]
     Indication: CHRONIC OBSTRUCTIVE PULMONARY DISEASE
     Dosage: DAILY DOSE:18MCG
     Route: 055

REACTIONS (1)
  - POST HERPETIC NEURALGIA [None]
